FAERS Safety Report 4709735-4 (Version None)
Quarter: 2005Q2

REPORT INFORMATION
  Report Type: 
  Country: None (occurrence: None)
  Receive Date: 20050629
  Receipt Date: 20050523
  Transmission Date: 20051028
  Serious: No
  Sender: FDA-Public Use
  Company Number: 05P-163-0301027-00

PATIENT
  Age: 62 Year
  Sex: Female
  Weight: 77.1115 kg

DRUGS (9)
  1. HUMIRA [Suspect]
     Indication: RHEUMATOID ARTHRITIS
     Dosage: 40 MG, 1 IN 2 WK, SUBCUTANEOUS
     Route: 058
     Dates: start: 20050401
  2. METHOTREXATE SODIUM [Concomitant]
  3. SULFASALAZINE [Concomitant]
  4. PREDNISONE TAB [Concomitant]
  5. FOLIC ACID [Concomitant]
  6. BLOPRESS PLUS [Concomitant]
  7. LEVOTHYROXINE [Concomitant]
  8. ESTROGENS CONJUGATED [Concomitant]
  9. ASPIRIN [Concomitant]

REACTIONS (1)
  - HERPES SIMPLEX [None]
